FAERS Safety Report 7425597-9 (Version None)
Quarter: 2011Q2

REPORT INFORMATION
  Report Type: 
  Country: None (occurrence: None)
  Receive Date: 20110420
  Receipt Date: 20100721
  Transmission Date: 20111010
  Serious: No
  Sender: FDA-Public Use
  Company Number: US-ASTRAZENECA-2010SE34345

PATIENT
  Age: 49 Year
  Sex: Male

DRUGS (3)
  1. KAPIDEX [Suspect]
     Route: 048
  2. KAPIDEX [Suspect]
     Indication: GASTROOESOPHAGEAL REFLUX DISEASE
     Route: 048
  3. CASODEX [Suspect]
     Dosage: ONE IN ONE DAY
     Route: 048
     Dates: start: 20091101, end: 20100601

REACTIONS (6)
  - INSOMNIA [None]
  - GLUCOSE TOLERANCE IMPAIRED [None]
  - DRUG NAME CONFUSION [None]
  - BREAST MASS [None]
  - HEADACHE [None]
  - BREAST PAIN [None]
